FAERS Safety Report 10056917 (Version 1)
Quarter: 2014Q2

REPORT INFORMATION
  Report Type: Spontaneous
  Country: US (occurrence: US)
  Receive Date: 20140403
  Receipt Date: 20140403
  Transmission Date: 20141212
  Serious: No
  Sender: FDA-Public Use
  Company Number: US-009507513-1404USA000775

PATIENT
  Sex: Male

DRUGS (2)
  1. CLARITIN [Suspect]
     Indication: PRODUCT USED FOR UNKNOWN INDICATION
     Dosage: UNK, QD
     Route: 048
     Dates: start: 201401
  2. CLARITIN [Suspect]
     Dosage: 20 MG, UNKNOWN
     Route: 048
     Dates: start: 2014

REACTIONS (3)
  - Overdose [Unknown]
  - Drug effect decreased [Unknown]
  - Product physical issue [Unknown]
